FAERS Safety Report 6100000-X (Version None)
Quarter: 2009Q1

REPORT INFORMATION
  Report Type: 
  Country: None (occurrence: None)
  Receive Date: 20090303
  Receipt Date: 20090227
  Transmission Date: 20090719
  Serious: Yes (Other)
  Sender: FDA-Public Use
  Company Number: A0770729A

PATIENT
  Age: 41 Year
  Sex: Male

DRUGS (1)
  1. AVAMYS [Suspect]
     Indication: NASAL CONGESTION
     Dosage: 2ACTU PER DAY
     Route: 055
     Dates: start: 20090212, end: 20090227

REACTIONS (5)
  - ACNE [None]
  - CELLULITIS [None]
  - ERYTHEMA [None]
  - INFECTION [None]
  - PAIN [None]
